FAERS Safety Report 6619720-3 (Version None)
Quarter: 2010Q1

REPORT INFORMATION
  Report Type: 
  Country: None (occurrence: None)
  Receive Date: 20100309
  Receipt Date: 20100224
  Transmission Date: 20100710
  Serious: Yes (Other)
  Sender: FDA-Public Use
  Company Number: PHEH2010US02644

PATIENT
  Sex: Male

DRUGS (9)
  1. CLOZARIL [Suspect]
     Indication: SCHIZOPHRENIA
     Dosage: 200 MG, BID
     Route: 048
     Dates: start: 20050101, end: 20100208
  2. CLONIDINE [Concomitant]
     Dosage: 0.1 MG, TID
     Route: 048
     Dates: start: 20090507
  3. SEROQUEL [Concomitant]
     Dosage: 700 MG, QD
     Route: 048
  4. TRAZODONE HCL [Concomitant]
     Dosage: 100 MG, QHS
     Route: 048
  5. KLONOPIN [Concomitant]
     Dosage: 1 MG, TID
     Route: 048
  6. ZYPREXA [Concomitant]
     Dosage: 5 MG, QHS
     Route: 048
     Dates: start: 20100219
  7. CARBOPLATIN [Concomitant]
     Indication: LUNG NEOPLASM MALIGNANT
  8. TAXOL [Concomitant]
     Indication: LUNG NEOPLASM MALIGNANT
  9. AVASTIN [Concomitant]
     Indication: LUNG NEOPLASM MALIGNANT

REACTIONS (4)
  - ANAEMIA [None]
  - LEUKOPENIA [None]
  - LUNG CANCER METASTATIC [None]
  - NEUTROPENIA [None]
